FAERS Safety Report 10046759 (Version 1)
Quarter: 2014Q1

REPORT INFORMATION
  Report Type: Spontaneous
  Country: US (occurrence: None)
  Receive Date: 20140326
  Receipt Date: 20140326
  Transmission Date: 20141002
  Serious: Yes (Hospitalization)
  Sender: FDA-Public Use
  Company Number: 2014US003084

PATIENT
  Age: 66 Year
  Sex: Female
  Weight: 80 kg

DRUGS (19)
  1. PONATINIB (AP24534) TABLET [Suspect]
     Indication: CHRONIC MYELOID LEUKAEMIA
     Route: 048
     Dates: start: 20110330, end: 20131016
  2. ALLOPURINOL (ALLOPURINOL) [Concomitant]
  3. ASPIRIN (ACESTYLSALICYLIC ACID) [Concomitant]
  4. CALCIUM +D (CALCIUM CARBONATE, COLECALCIFEROL) [Concomitant]
  5. CHLORHEXIDINE (CHLORHEXIDINE DIACETATE) [Concomitant]
  6. EFFEXOR (VENLAFAXINE HYDROCHLORIDE) UNKNOWN [Concomitant]
  7. FLUTICASONE (FLUTICASONE PROPIONATE) [Concomitant]
  8. HYDRALAZINE (HYDRALAZINE) [Concomitant]
  9. HYDROCHLOROTHIAZIDE (HYDROCHLOROTHIAZIDE) [Concomitant]
  10. LABETALOL HCL (LABETALOL HYDROCHLORIDE) [Concomitant]
  11. LASIX (FUROSEMIDE) [Concomitant]
  12. LEVOTHYROXINE (LOVETHYROXINE SODIUM) [Concomitant]
  13. NEILMED SINUS RINSE (SODIUM BICARBONATE, SODIUM CHLORIDE) [Concomitant]
  14. MAG OXIDE (MAGNESIUM OXIDE) [Concomitant]
  15. NEURONTIN (GABAPENTIN) [Concomitant]
  16. NIFEDIPINE (NIFEDIPINE) (NIFEDIPINE) [Concomitant]
  17. PRILOSEC (OMEPRAZOLE) [Concomitant]
  18. SPIRONOLACTONE (SPIRONOLACTONE) [Concomitant]
  19. RESTASIS (CICLOSPORIN) [Concomitant]

REACTIONS (8)
  - Hypoxia [None]
  - Dehydration [None]
  - Dyspnoea [None]
  - Dizziness [None]
  - Confusional state [None]
  - Asthenia [None]
  - Pneumonia [None]
  - Pericardial effusion [None]
